FAERS Safety Report 5934518-7 (Version None)
Quarter: 2008Q4

REPORT INFORMATION
  Report Type: 
  Country: None (occurrence: None)
  Receive Date: 20081029
  Receipt Date: 20081017
  Transmission Date: 20090506
  Serious: Yes (Other)
  Sender: FDA-Public Use
  Company Number: US-ELI_LILLY_AND_COMPANY-US200810004687

PATIENT
  Sex: Female

DRUGS (3)
  1. CYMBALTA [Suspect]
     Indication: MAJOR DEPRESSION
     Dosage: 30 MG, DAILY (1/D)
     Dates: start: 20081010, end: 20081012
  2. METFORMIN HYDROCHLORIDE [Concomitant]
     Indication: DIABETES MELLITUS
     Dosage: UNK, UNK
     Dates: start: 20071001
  3. DIOVAN [Concomitant]
     Indication: HYPERTENSION
     Dosage: UNK, UNK
     Dates: start: 20061001

REACTIONS (1)
  - HYPERTENSION [None]
